FAERS Safety Report 5484159-3 (Version None)
Quarter: 2007Q4

REPORT INFORMATION
  Report Type: 
  Country: None (occurrence: None)
  Receive Date: 20071012
  Receipt Date: 20070709
  Transmission Date: 20080405
  Serious: No
  Sender: FDA-Public Use
  Company Number: US-ASTRAZENECA-2007UW16064

PATIENT
  Age: 62 Year
  Sex: Female
  Weight: 74.8 kg

DRUGS (4)
  1. SYMBICORT PMDI [Suspect]
     Indication: ASTHMA
     Dosage: 80/4.5 MCG, 2 PUFFS BID
     Route: 055
     Dates: start: 20070701
  2. SYMBICORT PMDI [Suspect]
     Indication: BRONCHITIS CHRONIC
     Dosage: 80/4.5 MCG, 2 PUFFS BID
     Route: 055
     Dates: start: 20070701
  3. FORADIL [Concomitant]
  4. MSM [Concomitant]

REACTIONS (3)
  - EYE SWELLING [None]
  - PRURITUS [None]
  - RASH [None]
